FAERS Safety Report 22158363 (Version 1)
Quarter: 2023Q1

REPORT INFORMATION
  Report Type: Spontaneous
  Country: GB (occurrence: GB)
  Receive Date: 20230331
  Receipt Date: 20230331
  Transmission Date: 20230417
  Serious: Yes (Other)
  Sender: FDA-Public Use
  Company Number: GB-MHRA-TPP33220861C9684685YC1679049591632

PATIENT
  Age: 21 Year
  Sex: Female
  Weight: 52 kg

DRUGS (5)
  1. NITROFURANTOIN [Suspect]
     Active Substance: NITROFURANTOIN
     Indication: Ill-defined disorder
     Dosage: UNK
     Route: 065
     Dates: start: 20230316
  2. BETNOVATE [Concomitant]
     Active Substance: BETAMETHASONE
     Indication: Ill-defined disorder
     Dosage: APPLY THINLY 2 TIMES DAILY TO AFFECTED AREA OF
     Route: 065
     Dates: start: 20230308
  3. FOSFOMYCIN [Concomitant]
     Active Substance: FOSFOMYCIN
     Indication: Ill-defined disorder
     Dosage: FOR ACUTE UNCOMPLICATED LOWER UTI: DISSOLVE THE...
     Route: 065
     Dates: start: 20230316, end: 20230317
  4. KETOCONAZOLE [Concomitant]
     Active Substance: KETOCONAZOLE
     Indication: Ill-defined disorder
     Dosage: USE 4 TIMES A WEEK THEN REDUCED TO ONCE WEEKLY ...
     Route: 065
     Dates: start: 20230308
  5. NITROFURANTOIN [Concomitant]
     Active Substance: NITROFURANTOIN
     Indication: Ill-defined disorder
     Dosage: TAKE ONE CAPSULE FOUR TIMES A DAY FOR THREE DAY...
     Route: 065
     Dates: start: 20230315

REACTIONS (3)
  - Headache [Unknown]
  - Illness [Unknown]
  - Nausea [Unknown]

NARRATIVE: CASE EVENT DATE: 20230316
